FAERS Safety Report 20134001 (Version 4)
Quarter: 2022Q1

REPORT INFORMATION
  Report Type: Other
  Country: CA (occurrence: CA)
  Receive Date: 20211201
  Receipt Date: 20220325
  Transmission Date: 20220423
  Serious: Yes (Other)
  Sender: FDA-Public Use
  Company Number: CA-CELLTRION INC.-2021CA016124

PATIENT

DRUGS (11)
  1. RITUXIMAB [Suspect]
     Active Substance: RITUXIMAB
     Indication: Granulomatosis with polyangiitis
     Dosage: 500 MG
     Route: 042
  2. BENADRYL [Concomitant]
     Active Substance: DIPHENHYDRAMINE HYDROCHLORIDE
     Indication: Premedication
     Dosage: 50 MG
     Route: 048
  3. CALCIUM [Concomitant]
     Active Substance: CALCIUM
     Dosage: 1 DF
  4. DESOXIMETASONE [Concomitant]
     Active Substance: DESOXIMETASONE
     Dosage: 1 DF
  5. FOLIC ACID [Concomitant]
     Active Substance: FOLIC ACID
     Dosage: 1 DF
  6. METHOTREXATE [Concomitant]
     Active Substance: METHOTREXATE
     Dosage: 1 DF
     Route: 058
  7. METHOTREXATE [Concomitant]
     Active Substance: METHOTREXATE
     Dosage: 1 DF
     Route: 065
  8. METOPROLOL [Concomitant]
     Active Substance: METOPROLOL
     Dosage: 1 DF
  9. PREDNISONE [Concomitant]
     Active Substance: PREDNISONE
  10. VALSARTAN [Concomitant]
     Active Substance: VALSARTAN
     Dosage: 1 DF
  11. CHOLECALCIFEROL [Concomitant]
     Active Substance: CHOLECALCIFEROL
     Dosage: 1 DF

REACTIONS (4)
  - Nervous system disorder [Unknown]
  - Blindness [Unknown]
  - Off label use [Unknown]
  - Product use issue [Unknown]
